FAERS Safety Report 10239069 (Version 2)
Quarter: 2014Q2

REPORT INFORMATION
  Report Type: Spontaneous
  Country: US (occurrence: US)
  Receive Date: 20140616
  Receipt Date: 20140616
  Transmission Date: 20141212
  Serious: Yes (Hospitalization)
  Sender: FDA-Public Use
  Company Number: US-US-EMD SERONO, INC.-236817J08USA

PATIENT
  Age: 59 Year
  Sex: Female
  Weight: 52 kg

DRUGS (17)
  1. REBIF [Suspect]
     Indication: MULTIPLE SCLEROSIS
     Route: 058
     Dates: start: 20030626, end: 200711
  2. REBIF [Suspect]
     Dates: start: 200711, end: 200801
  3. REBIF [Suspect]
     Route: 058
     Dates: start: 200801, end: 2008
  4. REBIF [Suspect]
     Dates: start: 2008, end: 200802
  5. REBIF [Suspect]
     Dates: start: 200802, end: 200812
  6. XANAX [Concomitant]
     Indication: ANXIETY
     Route: 065
     Dates: start: 2008
  7. LOPID [Concomitant]
     Indication: BLOOD CHOLESTEROL INCREASED
  8. FOSAMAX [Concomitant]
     Indication: OSTEOPOROSIS
  9. OSCAL [Concomitant]
     Indication: OSTEOPOROSIS
  10. ZOLOFT [Concomitant]
     Indication: DEPRESSION
     Dates: start: 2008
  11. NAPROSYN [Concomitant]
     Indication: PAIN
  12. CYTOTEC [Concomitant]
     Indication: PROPHYLAXIS AGAINST GASTROINTESTINAL ULCER
  13. DIGOXIN [Concomitant]
     Indication: HEART RATE INCREASED
  14. PRAVASTATIN [Concomitant]
     Indication: PRODUCT USED FOR UNKNOWN INDICATION
  15. PRILOSEC                           /00661201/ [Concomitant]
     Indication: PRODUCT USED FOR UNKNOWN INDICATION
  16. GLUCOSAMINE SULFATE [Concomitant]
     Indication: PRODUCT USED FOR UNKNOWN INDICATION
  17. FERROUS FUMARATE [Concomitant]
     Indication: PRODUCT USED FOR UNKNOWN INDICATION

REACTIONS (9)
  - Cholelithiasis [Recovered/Resolved]
  - Gastric ulcer [Recovered/Resolved]
  - Haemoglobin decreased [Recovered/Resolved]
  - Infection [Recovered/Resolved]
  - Abdominal hernia [Recovered/Resolved]
  - Abscess [Recovered/Resolved]
  - Clostridium difficile infection [Unknown]
  - Multiple sclerosis relapse [Recovered/Resolved]
  - Progressive multiple sclerosis [Unknown]
